FAERS Safety Report 11091168 (Version 1)
Quarter: 2015Q2

REPORT INFORMATION
  Report Type: Spontaneous
  Country: US (occurrence: US)
  Receive Date: 20150505
  Receipt Date: 20150505
  Transmission Date: 20150821
  Serious: No
  Sender: FDA-Public Use
  Company Number: US-BAUSCH-BL-2014-003740

PATIENT
  Age: 85 Year
  Sex: Female

DRUGS (1)
  1. OFLOXACIN OTIC [Suspect]
     Active Substance: OFLOXACIN
     Indication: EAR INFECTION
     Route: 047

REACTIONS (2)
  - Wrong drug administered [Unknown]
  - No adverse event [Unknown]

NARRATIVE: CASE EVENT DATE: 2014
